FAERS Safety Report 9196489 (Version 1)
Quarter: 2013Q1

REPORT INFORMATION
  Report Type: Spontaneous
  Country: US (occurrence: US)
  Receive Date: 20130328
  Receipt Date: 20130328
  Transmission Date: 20140127
  Serious: Yes (Other)
  Sender: FDA-Public Use
  Company Number: US-COVIDIEN/TYCO HEALTHCARE/MALLINCKRODT-T201301378

PATIENT
  Age: 46 Year
  Sex: Female

DRUGS (7)
  1. OPTIRAY [Suspect]
     Indication: COMPUTERISED TOMOGRAM
     Dosage: 121 ML, SINGLE
     Route: 042
     Dates: start: 20130311, end: 20130311
  2. ADVAIR [Concomitant]
     Dosage: UNK
  3. ALBUTEROL                          /00139501/ [Concomitant]
     Dosage: UNK
  4. FLAGYL /00012501/ [Concomitant]
     Dosage: UNK
  5. FLEXERIL                           /00428402/ [Concomitant]
     Dosage: UNK
  6. ULTRAM [Concomitant]
     Dosage: UNK
  7. OMEPRAZOLE [Concomitant]
     Dosage: UNK

REACTIONS (7)
  - Tongue disorder [Unknown]
  - Chest discomfort [Unknown]
  - Dyspnoea [Unknown]
  - Throat irritation [Unknown]
  - Eye pruritus [Unknown]
  - Pruritus [Unknown]
  - Dizziness [Unknown]
